FAERS Safety Report 5842248-5 (Version None)
Quarter: 2008Q3

REPORT INFORMATION
  Report Type: 
  Country: None (occurrence: None)
  Receive Date: 20080731
  Receipt Date: 20080331
  Transmission Date: 20090109
  Serious: No
  Sender: FDA-Public Use
  Company Number: US200801003288

PATIENT
  Age: 63 Year
  Sex: Female

DRUGS (10)
  1. BYETTA [Suspect]
     Indication: TYPE 2 DIABETES MELLITUS
     Dosage: 5 UG, DAILY (1/D), SUBCUTANEOUS, 5 UG, 2/D, SUBCUTANEOUS, 5 UG, DAILY (1/D)
     Route: 058
     Dates: start: 20080101, end: 20080101
  2. BYETTA [Suspect]
     Indication: TYPE 2 DIABETES MELLITUS
     Dosage: 5 UG, DAILY (1/D), SUBCUTANEOUS, 5 UG, 2/D, SUBCUTANEOUS, 5 UG, DAILY (1/D)
     Route: 058
     Dates: start: 20080101, end: 20080101
  3. BYETTA [Suspect]
     Indication: TYPE 2 DIABETES MELLITUS
     Dosage: 5 UG, DAILY (1/D), SUBCUTANEOUS, 5 UG, 2/D, SUBCUTANEOUS, 5 UG, DAILY (1/D)
     Route: 058
     Dates: start: 20080310
  4. BYETTA [Suspect]
  5. METFORMIN HCL [Concomitant]
  6. AMARYL [Concomitant]
  7. LISINOPRIL [Concomitant]
  8. LIPITOR [Concomitant]
  9. DITROPAN [Concomitant]
  10. WELLBUTRIN [Concomitant]

REACTIONS (8)
  - ASTHENIA [None]
  - CHEST DISCOMFORT [None]
  - DYSPHAGIA [None]
  - FATIGUE [None]
  - HEADACHE [None]
  - HYPERHIDROSIS [None]
  - HYPOGLYCAEMIA [None]
  - NAUSEA [None]
